FAERS Safety Report 16468113 (Version 2)
Quarter: 2019Q3

REPORT INFORMATION
  Report Type: Spontaneous
  Country: BR (occurrence: BR)
  Receive Date: 20190624
  Receipt Date: 20190705
  Transmission Date: 20191004
  Serious: Yes (Hospitalization, Other)
  Sender: FDA-Public Use
  Company Number: BR-ABBVIE-19P-020-2827401-00

PATIENT
  Age: 67 Year
  Sex: Male

DRUGS (4)
  1. DEPAKENE [Suspect]
     Active Substance: VALPROIC ACID
     Indication: AGGRESSION
     Route: 050
  2. DEPAKENE [Suspect]
     Active Substance: VALPROIC ACID
     Indication: AFFECT LABILITY
  3. DEPAKENE [Suspect]
     Active Substance: VALPROIC ACID
     Indication: AGGRESSION
     Dosage: 5 TO 7 TABLETS PER DAY, REPORTER COULD NOT CONFIRM
     Route: 048
  4. DEPAKENE [Suspect]
     Active Substance: VALPROIC ACID
     Indication: AFFECT LABILITY

REACTIONS (10)
  - Aspiration [Unknown]
  - Nerve degeneration [Unknown]
  - Fatigue [Recovered/Resolved]
  - Cardiac disorder [Unknown]
  - Endotracheal intubation [Unknown]
  - Asthenia [Not Recovered/Not Resolved]
  - Nervousness [Not Recovered/Not Resolved]
  - Incorrect route of product administration [Unknown]
  - Encephalitis autoimmune [Unknown]
  - Cough [Unknown]

NARRATIVE: CASE EVENT DATE: 201902
